FAERS Safety Report 5647522-3 (Version None)
Quarter: 2008Q1

REPORT INFORMATION
  Report Type: 
  Country: None (occurrence: None)
  Receive Date: 20080303
  Receipt Date: 20080222
  Transmission Date: 20080703
  Serious: Yes (Hospitalization)
  Sender: FDA-Public Use
  Company Number: US-WYE-H02766808

PATIENT
  Age: 59 Year
  Sex: Male
  Weight: 66.74 kg

DRUGS (4)
  1. PROTONIX [Suspect]
     Indication: GASTROOESOPHAGEAL REFLUX DISEASE
     Route: 048
  2. ST. JOHN'S WORT [Concomitant]
     Dosage: UNKNOWN
  3. ASCORBIC ACID/CHONDROITIN SULFATE/GLUCOSAMINE SULFATE/MANGANESE [Concomitant]
     Dosage: UNKNOWN
  4. PHENYLALANINE [Concomitant]
     Dosage: UNKNOWN

REACTIONS (3)
  - EXFOLIATIVE RASH [None]
  - INFLAMMATION [None]
  - WOUND SECRETION [None]
